FAERS Safety Report 21220206 (Version 1)
Quarter: 2022Q3

REPORT INFORMATION
  Report Type: Report from Study
  Country: MX (occurrence: MX)
  Receive Date: 20220817
  Receipt Date: 20220817
  Transmission Date: 20221026
  Serious: Yes (Death)
  Sender: FDA-Public Use
  Company Number: MX-NOVARTISPH-NVSC2022MX185462

PATIENT
  Sex: Female
  Weight: 32 kg

DRUGS (2)
  1. METFORMIN HYDROCHLORIDE\VILDAGLIPTIN [Suspect]
     Active Substance: METFORMIN HYDROCHLORIDE\VILDAGLIPTIN
     Indication: Diabetes mellitus
     Dosage: 1 DOSAGE FORM, QD (50/1000, BY MOUTH)
     Route: 048
     Dates: start: 202103
  2. EXFORGE HCT [Suspect]
     Active Substance: AMLODIPINE BESYLATE\HYDROCHLOROTHIAZIDE\VALSARTAN
     Indication: Hypertension
     Dosage: 1 DOSAGE FORM, QD (10/320/25 MG), BY MOUTH (START DATE: AROUND 8 MONTHS SINCE HAVING STARTED WITH TH
     Route: 048

REACTIONS (3)
  - Renal cancer [Fatal]
  - Hepatic cancer [Fatal]
  - Hypotension [Unknown]
